FAERS Safety Report 6277133-0 (Version None)
Quarter: 2009Q3

REPORT INFORMATION
  Report Type: 
  Country: None (occurrence: None)
  Receive Date: 20090722
  Receipt Date: 20090115
  Transmission Date: 20100115
  Serious: No
  Sender: FDA-Public Use
  Company Number: US-BRISTOL-MYERS SQUIBB COMPANY-14474084

PATIENT
  Sex: Male

DRUGS (2)
  1. COUMADIN [Suspect]
     Indication: DEEP VEIN THROMBOSIS
     Dosage: STARTED AROUND 09-OCT-2008. WAS INTERRUPTED, THEN RESUMED AND FINALLY DISCONTINUED
     Dates: start: 20081001
  2. LOVENOX [Suspect]
     Indication: DEEP VEIN THROMBOSIS
     Dosage: STARTED AROUND 09-OCT-2008. WAS INTERRUPTED, THEN RESUMED
     Dates: start: 20081001

REACTIONS (2)
  - ARTHRALGIA [None]
  - MYALGIA [None]
